FAERS Safety Report 8523187 (Version 7)
Quarter: 2012Q4

REPORT INFORMATION
  Report Type: 
  Country: ES (occurrence: ES)
  Receive Date: 20120420
  Receipt Date: 20120920
  Transmission Date: 20130627
  Serious: Yes (Death, Hospitalization, Other)
  Sender: FDA-Public Use
  Company Number: ES-BIOGENIDEC-2012BI010219

PATIENT
  Age: 46 Year
  Sex: Female
  Weight: 55 kg

DRUGS (1)
  1. TYSABRI [Suspect]
     Indication: MULTIPLE SCLEROSIS
     Route: 042
     Dates: start: 20091021, end: 20120210

REACTIONS (3)
  - Foreign body aspiration [Fatal]
  - Progressive multifocal leukoencephalopathy [Fatal]
  - Complex partial seizures [Unknown]
